FAERS Safety Report 20692665 (Version 2)
Quarter: 2022Q2

REPORT INFORMATION
  Report Type: Report from Study
  Country: AR (occurrence: AR)
  Receive Date: 20220409
  Receipt Date: 20220414
  Transmission Date: 20220721
  Serious: Yes (Other)
  Sender: FDA-Public Use
  Company Number: AR-NOVARTISPH-NVSC2022AR079145

PATIENT
  Sex: Female

DRUGS (4)
  1. EXFORGE HCT [Suspect]
     Active Substance: AMLODIPINE BESYLATE\HYDROCHLOROTHIAZIDE\VALSARTAN
     Indication: Blood pressure increased
     Dosage: 2, QD (START DATE: SINCE 15 OR 20 YEARS AGO)
     Route: 065
  2. EXFORGE HCT [Suspect]
     Active Substance: AMLODIPINE BESYLATE\HYDROCHLOROTHIAZIDE\VALSARTAN
     Dosage: UNK, STARTED MORE OR LESS 15 YEARS AGO
     Route: 065
     Dates: end: 201901
  3. EXFORGE HCT [Suspect]
     Active Substance: AMLODIPINE BESYLATE\HYDROCHLOROTHIAZIDE\VALSARTAN
     Dosage: UNK, STOPPED 3 MONTHS AGO
     Route: 065
  4. ADIKAN [Concomitant]
     Indication: Gastritis erosive
     Dosage: 1 DOSAGE FORM, QD (PER DAY EVERY MORNING, SHE SAID SHE HAS HAD THIS FOREVER)
     Route: 065

REACTIONS (5)
  - Hormone refractory breast cancer [Unknown]
  - Breast cancer [Unknown]
  - Breast mass [Unknown]
  - Blood potassium decreased [Unknown]
  - Blood sodium decreased [Unknown]
